FAERS Safety Report 16234480 (Version 1)
Quarter: 2019Q2

REPORT INFORMATION
  Report Type: Spontaneous
  Country: US (occurrence: US)
  Receive Date: 20190319
  Receipt Date: 20190319
  Transmission Date: 20190711
  Serious: No
  Sender: FDA-Public Use
  Company Number: None

PATIENT
  Age: 66 Year
  Sex: Female
  Weight: 58.97 kg

DRUGS (7)
  1. GARLIC. [Concomitant]
     Active Substance: GARLIC
  2. ESER C [Concomitant]
  3. CALTRATE [Concomitant]
     Active Substance: CALCIUM CARBONATE
  4. D [Concomitant]
  5. E [Concomitant]
  6. BLACK COHASH [Concomitant]
  7. INDOMETHACIN. [Suspect]
     Active Substance: INDOMETHACIN
     Indication: INFLAMMATION
     Dosage: ?          QUANTITY:1 DF DOSAGE FORM;?
     Route: 048
     Dates: start: 20190306, end: 20190307

REACTIONS (1)
  - Nausea [None]

NARRATIVE: CASE EVENT DATE: 20190307
